FAERS Safety Report 8598499-2 (Version None)
Quarter: 2012Q3

REPORT INFORMATION
  Report Type: 
  Country: None (occurrence: None)
  Receive Date: 20120816
  Receipt Date: 20120801
  Transmission Date: 20120928
  Serious: Yes (Other)
  Sender: FDA-Public Use
  Company Number: NO-ROCHE-1082472

PATIENT
  Sex: Female

DRUGS (11)
  1. MABTHERA [Suspect]
     Indication: WEGENER'S GRANULOMATOSIS
     Dosage: GIVEN AFTER 1 MONTH FROM THE EVENT
     Dates: start: 20061101
  2. CELLCEPT [Suspect]
     Indication: WEGENER'S GRANULOMATOSIS
  3. CYCLOPHOSPHAMIDE [Suspect]
     Indication: WEGENER'S GRANULOMATOSIS
  4. TACROLIMUS [Suspect]
     Indication: WEGENER'S GRANULOMATOSIS
  5. EVEROLIMUS [Suspect]
     Indication: WEGENER'S GRANULOMATOSIS
  6. METHOTREXATE [Suspect]
     Indication: WEGENER'S GRANULOMATOSIS
  7. IMMUNE GLOBULIN NOS [Suspect]
     Indication: WEGENER'S GRANULOMATOSIS
     Route: 042
  8. AZATHIOPRINE SODIUM [Suspect]
     Indication: WEGENER'S GRANULOMATOSIS
  9. MABTHERA [Suspect]
     Indication: RHEUMATOID ARTHRITIS
     Dates: start: 20061101
  10. PREDNISOLONE [Concomitant]
  11. METHOTREXATE [Suspect]
     Indication: OFF LABEL USE

REACTIONS (2)
  - NEUTROPENIA [None]
  - COLITIS [None]
